FAERS Safety Report 5243360-4 (Version None)
Quarter: 2007Q1

REPORT INFORMATION
  Report Type: 
  Country: None (occurrence: None)
  Receive Date: 20061201
  Receipt Date: 20060820
  Transmission Date: 20070707
  Serious: No
  Sender: FDA-Public Use
  Company Number: 2006PV019727

PATIENT
  Age: 45 Year
  Sex: Female
  Weight: 59.8748 kg

DRUGS (4)
  1. BYETTA [Suspect]
     Indication: DIABETES MELLITUS NON-INSULIN-DEPENDENT
     Dosage: SEE IMAGE
     Route: 058
     Dates: start: 20050901, end: 20060814
  2. BYETTA [Suspect]
     Indication: DIABETES MELLITUS NON-INSULIN-DEPENDENT
     Dosage: SEE IMAGE
     Route: 058
     Dates: start: 20060815
  3. METFORMIN [Concomitant]
  4. AMARYL [Concomitant]

REACTIONS (6)
  - DEPRESSED MOOD [None]
  - FATIGUE [None]
  - HEADACHE [None]
  - INJECTION SITE RASH [None]
  - NAUSEA [None]
  - WEIGHT DECREASED [None]
